FAERS Safety Report 4478724-X (Version None)
Quarter: 2004Q4

REPORT INFORMATION
  Report Type: 
  Country: None (occurrence: None)
  Receive Date: 20041019
  Receipt Date: 20041008
  Transmission Date: 20050328
  Serious: Yes (Disabling)
  Sender: FDA-Public Use
  Company Number: NSADSS2002024051

PATIENT
  Age: 50 Year
  Sex: Male
  Weight: 55 kg

DRUGS (1)
  1. LEVOFLOXACIN [Suspect]
     Route: 049
     Dates: start: 20020301

REACTIONS (3)
  - ARTHRALGIA [None]
  - CARTILAGE INJURY [None]
  - TENDONITIS [None]
